FAERS Safety Report 9204480 (Version 1)
Quarter: 2013Q2

REPORT INFORMATION
  Report Type: Spontaneous
  Country: BR (occurrence: BR)
  Receive Date: 20130402
  Receipt Date: 20130402
  Transmission Date: 20140414
  Serious: Yes (Other)
  Sender: FDA-Public Use
  Company Number: BR-BAYER-2013-039825

PATIENT
  Age: 2 Month
  Sex: Male

DRUGS (1)
  1. MIRENA [Suspect]
     Dosage: UNK
     Route: 064
     Dates: start: 200903, end: 200904

REACTIONS (2)
  - Bronchiolitis [None]
  - Sinusitis [None]
